FAERS Safety Report 11672854 (Version 1)
Quarter: 2015Q4

REPORT INFORMATION
  Report Type: Spontaneous
  Country: FR (occurrence: FR)
  Receive Date: 20151028
  Receipt Date: 20151028
  Transmission Date: 20160304
  Serious: Yes (Other)
  Sender: FDA-Public Use
  Company Number: FR-ASTRAZENECA-2015SF03243

PATIENT
  Age: 19047 Day
  Sex: Male

DRUGS (2)
  1. MERONEM [Suspect]
     Active Substance: MEROPENEM
     Indication: KLEBSIELLA INFECTION
     Route: 041
     Dates: start: 20150917, end: 20151002
  2. CANCIDAS [Suspect]
     Active Substance: CASPOFUNGIN ACETATE
     Route: 041
     Dates: start: 20150928, end: 20151002

REACTIONS (4)
  - Necrotising fasciitis [Unknown]
  - Dermo-hypodermitis [Unknown]
  - Mucosal inflammation [Unknown]
  - Aplasia [Unknown]

NARRATIVE: CASE EVENT DATE: 20150921
